FAERS Safety Report 7579409-3 (Version None)
Quarter: 2011Q2

REPORT INFORMATION
  Report Type: 
  Country: None (occurrence: None)
  Receive Date: 20110629
  Receipt Date: 20110621
  Transmission Date: 20111010
  Serious: Yes (Hospitalization)
  Sender: FDA-Public Use
  Company Number: US-BIOGENIDEC-2011BI016470

PATIENT
  Age: 68 Year
  Sex: Female

DRUGS (2)
  1. TYSABRI [Suspect]
     Indication: MULTIPLE SCLEROSIS
     Route: 042
     Dates: start: 20100826, end: 20101208
  2. TYSABRI [Suspect]
     Route: 042
     Dates: start: 20070130, end: 20080401

REACTIONS (3)
  - GAIT DISTURBANCE [None]
  - LIVER INJURY [None]
  - PNEUMONIA [None]
